FAERS Safety Report 8256450-9 (Version None)
Quarter: 2012Q2

REPORT INFORMATION
  Report Type: 
  Country: None (occurrence: None)
  Receive Date: 20120403
  Receipt Date: 20120323
  Transmission Date: 20120825
  Serious: Yes (Hospitalization, Other)
  Sender: FDA-Public Use
  Company Number: JP-CELGENEUS-087-50794-12033037

PATIENT
  Age: 54 Year
  Sex: Male
  Weight: 57 kg

DRUGS (7)
  1. ALLOPURINOL [Concomitant]
     Route: 065
     Dates: start: 20111209
  2. KYTRIL [Concomitant]
     Route: 065
     Dates: start: 20111209, end: 20111215
  3. VIDAZA [Suspect]
     Indication: MYELODYSPLASTIC SYNDROME
     Dosage: 75 MILLIGRAM/SQ. METER
     Route: 041
     Dates: start: 20111209, end: 20111215
  4. VIDAZA [Suspect]
     Dosage: 75 MILLIGRAM/SQ. METER
     Route: 041
     Dates: start: 20120118, end: 20120124
  5. FIRSTCIN [Concomitant]
     Route: 065
     Dates: start: 20120212, end: 20120213
  6. POLYMYXIN B SULFATE [Concomitant]
     Route: 065
     Dates: start: 20111209
  7. ITRACONAZOLE [Concomitant]
     Route: 065
     Dates: start: 20111209

REACTIONS (6)
  - BLOOD LACTATE DEHYDROGENASE INCREASED [None]
  - HAEMOGLOBIN DECREASED [None]
  - NEUTROPHIL COUNT DECREASED [None]
  - EOSINOPHIL COUNT INCREASED [None]
  - PLATELET COUNT DECREASED [None]
  - WHITE BLOOD CELL COUNT DECREASED [None]
